FAERS Safety Report 6961998-0 (Version None)
Quarter: 2010Q3

REPORT INFORMATION
  Report Type: 
  Country: None (occurrence: None)
  Receive Date: 20100902
  Receipt Date: 20100825
  Transmission Date: 20110219
  Serious: No
  Sender: FDA-Public Use
  Company Number: 2009BI006611

PATIENT
  Sex: Female

DRUGS (3)
  1. TYSABRI [Suspect]
     Indication: MULTIPLE SCLEROSIS
     Route: 042
     Dates: start: 20060401, end: 20070301
  2. TYSABRI [Suspect]
     Route: 042
     Dates: start: 20070418, end: 20081222
  3. TYSABRI [Suspect]
     Route: 042
     Dates: start: 20100222

REACTIONS (6)
  - AMNESIA [None]
  - ARTHROPATHY [None]
  - BACK PAIN [None]
  - BALANCE DISORDER [None]
  - MEMORY IMPAIRMENT [None]
  - MULTIPLE SCLEROSIS RELAPSE [None]
